FAERS Safety Report 4497908-8 (Version None)
Quarter: 2004Q4

REPORT INFORMATION
  Report Type: 
  Country: None (occurrence: None)
  Receive Date: 20041104
  Receipt Date: 20041019
  Transmission Date: 20050328
  Serious: Yes (Other)
  Sender: FDA-Public Use
  Company Number: 2004240416JP

PATIENT
  Age: 67 Year
  Sex: Male

DRUGS (11)
  1. SOLU-MEDROL [Suspect]
     Dosage: 250 MG, QD, IV
     Route: 042
  2. UNIPHYL [Concomitant]
  3. MUCODYNE [Concomitant]
  4. ZYRTEC [Concomitant]
  5. HOKUNALIN (TULOBUTEROL HYDROCHLORIDE) [Concomitant]
  6. FLUTICASONE PROPIONATE [Concomitant]
  7. AIROMIR (SALBUTAMOL SULFATE) [Concomitant]
  8. SOLITA T [Concomitant]
  9. HARTMANN'S SOLUTION [Concomitant]
  10. BETAHISTINE MESILATE [Concomitant]
  11. NEOPHYLLIN [Concomitant]

REACTIONS (2)
  - CONVULSION [None]
  - DEPRESSED LEVEL OF CONSCIOUSNESS [None]
